FAERS Safety Report 23124746 (Version 2)
Quarter: 2023Q4

REPORT INFORMATION
  Report Type: Spontaneous
  Country: JP (occurrence: JP)
  Receive Date: 20231030
  Receipt Date: 20231221
  Transmission Date: 20240110
  Serious: Yes (Other)
  Sender: FDA-Public Use
  Company Number: JP-BRISTOL-MYERS SQUIBB COMPANY-2023-151540

PATIENT
  Age: 56 Year
  Sex: Female
  Weight: 68 kg

DRUGS (18)
  1. REVLIMID [Suspect]
     Active Substance: LENALIDOMIDE
     Indication: Follicular lymphoma
     Dates: start: 20230314, end: 20230316
  2. REVLIMID [Suspect]
     Active Substance: LENALIDOMIDE
     Dates: start: 20230317, end: 20230403
  3. REVLIMID [Suspect]
     Active Substance: LENALIDOMIDE
     Dates: start: 20230413, end: 20230503
  4. REVLIMID [Suspect]
     Active Substance: LENALIDOMIDE
     Dates: start: 20230511, end: 20230531
  5. REVLIMID [Suspect]
     Active Substance: LENALIDOMIDE
     Dates: start: 20230608, end: 20230628
  6. REVLIMID [Suspect]
     Active Substance: LENALIDOMIDE
     Dates: start: 20230706, end: 20230726
  7. REVLIMID [Suspect]
     Active Substance: LENALIDOMIDE
     Dates: start: 20230803, end: 20230823
  8. REVLIMID [Suspect]
     Active Substance: LENALIDOMIDE
     Dates: start: 20230831, end: 20230920
  9. RITUXIMAB [Suspect]
     Active Substance: RITUXIMAB
     Indication: Follicular lymphoma
     Dates: start: 20230314, end: 20230314
  10. RITUXIMAB [Suspect]
     Active Substance: RITUXIMAB
     Dates: start: 20230322, end: 20230322
  11. RITUXIMAB [Suspect]
     Active Substance: RITUXIMAB
     Dates: start: 20230330, end: 20230330
  12. RITUXIMAB [Suspect]
     Active Substance: RITUXIMAB
     Dates: start: 20230406, end: 20230406
  13. RITUXIMAB [Suspect]
     Active Substance: RITUXIMAB
     Dates: start: 20230413, end: 20230413
  14. RITUXIMAB [Suspect]
     Active Substance: RITUXIMAB
     Dates: start: 20230511, end: 20230511
  15. RITUXIMAB [Suspect]
     Active Substance: RITUXIMAB
     Dates: start: 20230608, end: 20230608
  16. RITUXIMAB [Suspect]
     Active Substance: RITUXIMAB
     Dates: start: 20230706, end: 20230706
  17. SULFAMETHOXAZOLE\TRIMETHOPRIM [Concomitant]
     Active Substance: SULFAMETHOXAZOLE\TRIMETHOPRIM
     Indication: Prophylaxis
     Route: 048
     Dates: start: 20230314
  18. VALACYCLOVIR HYDROCHLORIDE [Concomitant]
     Active Substance: VALACYCLOVIR HYDROCHLORIDE
     Indication: Prophylaxis
     Dosage: CONTINUATION OF DOSING
     Route: 048
     Dates: start: 20230314

REACTIONS (1)
  - Renal impairment [Unknown]
